FAERS Safety Report 5123798-6 (Version None)
Quarter: 2006Q4

REPORT INFORMATION
  Report Type: 
  Country: None (occurrence: None)
  Receive Date: 20061010
  Receipt Date: 20061004
  Transmission Date: 20070319
  Serious: Yes (Other)
  Sender: FDA-Public Use
  Company Number: JP-AVENTIS-200613087JP

PATIENT
  Age: 13 Day
  Sex: Male

DRUGS (6)
  1. FUROSEMIDE [Suspect]
  2. HEPARIN [Suspect]
  3. CALCIUM CHLORIDE [Suspect]
  4. GLUCOSE [Concomitant]
  5. DOBUTAMINE HCL [Concomitant]
  6. DOPAMINE [Concomitant]

REACTIONS (6)
  - C-REACTIVE PROTEIN INCREASED [None]
  - CALCINOSIS [None]
  - ENDOCARDITIS [None]
  - MASS [None]
  - SKIN PAPILLOMA [None]
  - THROMBOSIS [None]
